FAERS Safety Report 7902533-X (Version None)
Quarter: 2011Q4

REPORT INFORMATION
  Report Type: 
  Country: None (occurrence: None)
  Receive Date: 20111108
  Receipt Date: 20111026
  Transmission Date: 20120403
  Serious: Yes (Hospitalization, Other)
  Sender: FDA-Public Use
  Company Number: US-ELI_LILLY_AND_COMPANY-US201004000724

PATIENT
  Sex: Female

DRUGS (8)
  1. FORTEO [Suspect]
     Indication: OSTEOPOROSIS
     Dosage: UNK, UNK
     Dates: start: 20091101
  2. NEURONTIN [Concomitant]
     Dosage: UNK, UNKNOWN
     Route: 065
  3. OXYCONTIN [Concomitant]
     Indication: PAIN
     Dosage: UNK, UNKNOWN
     Route: 065
  4. CIPROFLOXACIN [Concomitant]
     Dosage: UNK, UNKNOWN
     Route: 065
  5. COUMADIN [Concomitant]
     Dosage: UNK, OTHER (SLIDING SCALE)
     Route: 065
  6. DIGOXIN [Concomitant]
     Dosage: UNK, UNKNOWN
     Route: 065
  7. BACTRIM DS [Concomitant]
     Dosage: UNK, UNKNOWN
     Route: 065
  8. FORTEO [Suspect]
     Dosage: UNK, UNKNOWN
     Route: 065
     Dates: start: 20091101

REACTIONS (3)
  - LUNG INFECTION [None]
  - KNEE ARTHROPLASTY [None]
  - SPINAL OPERATION [None]
